FAERS Safety Report 5336795-2 (Version None)
Quarter: 2007Q2

REPORT INFORMATION
  Report Type: 
  Country: None (occurrence: None)
  Receive Date: 20070529
  Receipt Date: 20070515
  Transmission Date: 20071010
  Serious: Yes (Other)
  Sender: FDA-Public Use
  Company Number: PHHO2007CA08569

PATIENT
  Sex: Male

DRUGS (5)
  1. LAMPRENE [Suspect]
     Dosage: 100 MG, QD
     Route: 048
  2. AMIKACIN [Suspect]
     Dosage: 1300MG THREE TIMES A WEEK
  3. MOXIFLOXACIN HCL [Suspect]
     Dosage: 400 MG, QD
  4. TRECATOR [Suspect]
     Dosage: 750 MG, QD
     Route: 048
  5. PARA AMINOSALICYLIC ACID [Suspect]
     Dosage: 4 G, TID

REACTIONS (2)
  - ALANINE AMINOTRANSFERASE INCREASED [None]
  - ASPARTATE AMINOTRANSFERASE INCREASED [None]
